FAERS Safety Report 14353704 (Version 1)
Quarter: 2018Q1

REPORT INFORMATION
  Report Type: Spontaneous
  Country: US (occurrence: US)
  Receive Date: 20180105
  Receipt Date: 20180105
  Transmission Date: 20180509
  Serious: Yes (Hospitalization, Other)
  Sender: FDA-Public Use
  Company Number: US-ACCORD-061964

PATIENT
  Age: 76 Year
  Sex: Female

DRUGS (14)
  1. OLANZAPINE. [Interacting]
     Active Substance: OLANZAPINE
     Indication: MANIA
     Dosage: ALSO RECEIVED AT 10 MG/DAY
  2. VALPROIC ACID. [Interacting]
     Active Substance: VALPROIC ACID
     Indication: MANIA
     Dosage: ALSO RECEIVED AT 1000 MG/DAY?300 MG/DAY?250 MG/DAY
  3. OMEPRAZOLE. [Concomitant]
     Active Substance: OMEPRAZOLE
  4. OXCARBAZEPINE. [Suspect]
     Active Substance: OXCARBAZEPINE
     Indication: MOOD ALTERED
  5. ACETYLSALICYLIC ACID [Concomitant]
     Active Substance: ASPIRIN
  6. AMLODIPINE [Concomitant]
     Active Substance: AMLODIPINE BESYLATE
  7. LORATADINE. [Concomitant]
     Active Substance: LORATADINE
  8. SULFAMETHOXAZOLE/TRIMETHOPRIM [Concomitant]
     Indication: URINARY TRACT INFECTION
  9. LORAZEPAM. [Concomitant]
     Active Substance: LORAZEPAM
     Dosage: 1 MG PRO RE NATA (PRN)
  10. LEVOTHYROXINE. [Concomitant]
     Active Substance: LEVOTHYROXINE
  11. METOPROLOL. [Concomitant]
     Active Substance: METOPROLOL
  12. QUETIAPINE. [Suspect]
     Active Substance: QUETIAPINE
     Indication: MANIA
     Dosage: 600 MG/DAY?ALSO RECEIVED AT 250 MG/DAY?800 MG/DAY?300 MG/DAY
  13. LITHIUM. [Concomitant]
     Active Substance: LITHIUM
  14. FUROSEMIDE. [Concomitant]
     Active Substance: FUROSEMIDE

REACTIONS (5)
  - Sedation [Unknown]
  - Hyponatraemia [Unknown]
  - Hypothermia [Recovered/Resolved]
  - Mania [Recovered/Resolved]
  - Drug interaction [Unknown]
